FAERS Safety Report 18595326 (Version 1)
Quarter: 2020Q4

REPORT INFORMATION
  Report Type: Spontaneous
  Country: US (occurrence: US)
  Receive Date: 20201209
  Receipt Date: 20201209
  Transmission Date: 20210114
  Serious: Yes (Disabling)
  Sender: FDA-Public Use
  Company Number: None

PATIENT

DRUGS (1)
  1. OCREVUS [Suspect]
     Active Substance: OCRELIZUMAB
     Indication: MULTIPLE SCLEROSIS
     Dosage: ?          QUANTITY:2 INJECTION(S);OTHER FREQUENCY:1 EVERY 2 WKS;?
     Route: 042
     Dates: start: 20190529, end: 20190613

REACTIONS (2)
  - Walking aid user [None]
  - Disability [None]

NARRATIVE: CASE EVENT DATE: 20190529
